FAERS Safety Report 9219033 (Version 1)
Quarter: 2013Q2

REPORT INFORMATION
  Report Type: Spontaneous
  Country: US (occurrence: None)
  Receive Date: 20130409
  Receipt Date: 20130409
  Transmission Date: 20140414
  Serious: Yes (Hospitalization)
  Sender: FDA-Public Use
  Company Number: None

PATIENT
  Age: 76 Year
  Sex: Male
  Weight: 71.2 kg

DRUGS (2)
  1. WARFARIN [Suspect]
     Indication: DEEP VEIN THROMBOSIS
     Route: 048
     Dates: start: 20130320, end: 20130401
  2. ASPIRIN [Suspect]
     Indication: DIABETES MELLITUS
     Route: 048
     Dates: start: 20071119

REACTIONS (3)
  - International normalised ratio increased [None]
  - Gastrointestinal haemorrhage [None]
  - Haemoglobin decreased [None]
